FAERS Safety Report 8910056 (Version 1)
Quarter: 2012Q4

REPORT INFORMATION
  Report Type: Report from Study
  Country: US (occurrence: US)
  Receive Date: 20121115
  Receipt Date: 20121115
  Transmission Date: 20130627
  Serious: Yes (Hospitalization, Other)
  Sender: FDA-Public Use
  Company Number: US-ABBOTT-12P-163-1004983-00

PATIENT
  Age: 65 None
  Sex: Female
  Weight: 66.28 kg

DRUGS (19)
  1. HUMIRA PEN [Suspect]
     Indication: CROHN^S DISEASE
     Dates: end: 20121001
  2. VITAMIN B12 [Concomitant]
     Indication: VITAMIN B12 DEFICIENCY
     Route: 048
  3. FAMOTIDINE [Concomitant]
     Indication: GASTROOESOPHAGEAL REFLUX DISEASE
  4. GLYCOPYRROLATE [Concomitant]
     Indication: DIARRHOEA
  5. VERAPAMIL [Concomitant]
     Indication: HEADACHE
  6. VERAPAMIL [Concomitant]
     Indication: HYPERTENSION
  7. FUROSEMIDE [Concomitant]
     Indication: FLUID RETENTION
  8. FUROSEMIDE [Concomitant]
     Indication: JOINT SWELLING
  9. ARTHOROTEK [Concomitant]
     Indication: ARTHRALGIA
     Dosage: PRN
  10. MULTIVITAMIN AND MINERAL SUPPLEMENT [Concomitant]
     Indication: VITAMIN SUPPLEMENTATION
  11. MULTIVITAMIN AND MINERAL SUPPLEMENT [Concomitant]
     Indication: MINERAL SUPPLEMENTATION
  12. ESTER-C [Concomitant]
     Indication: ROUTINE HEALTH MAINTENANCE
  13. IRON [Concomitant]
     Indication: MINERAL SUPPLEMENTATION
  14. IMMODIUM [Concomitant]
     Indication: DIARRHOEA
     Dosage: PRN
  15. CALCIUM CITRATE [Concomitant]
     Indication: MINERAL SUPPLEMENTATION
  16. MAGNESIUM [Concomitant]
     Indication: MINERAL SUPPLEMENTATION
  17. FISH OIL [Concomitant]
     Indication: SUPPLEMENTATION THERAPY
  18. ACIDOPHILUS BIFIDUS [Concomitant]
     Indication: PROBIOTIC THERAPY
  19. VITAMIN D3 [Concomitant]
     Indication: VITAMIN SUPPLEMENTATION

REACTIONS (8)
  - Intestinal obstruction [Recovered/Resolved]
  - Inguinal hernia [Unknown]
  - Abdominal adhesions [Unknown]
  - Adhesion [Unknown]
  - Atrial fibrillation [Unknown]
  - Pain [Not Recovered/Not Resolved]
  - Blood potassium decreased [Unknown]
  - Abdominal hernia [Unknown]
